FAERS Safety Report 10894122 (Version 1)
Quarter: 2015Q1

REPORT INFORMATION
  Report Type: Spontaneous
  Country: KR (occurrence: KR)
  Receive Date: 20150306
  Receipt Date: 20150306
  Transmission Date: 20150721
  Serious: Yes (Death, Other)
  Sender: FDA-Public Use
  Company Number: PHHY2015KR025314

PATIENT
  Age: 46 Year
  Sex: Male

DRUGS (9)
  1. LEUCOVORIN CALCIUM. [Suspect]
     Active Substance: LEUCOVORIN CALCIUM
     Route: 065
     Dates: start: 20091020, end: 20091209
  2. 5-FLUOROURACIL [Suspect]
     Active Substance: FLUOROURACIL
     Indication: ADENOCARCINOMA GASTRIC
     Route: 041
     Dates: start: 20090709, end: 20091001
  3. LEUCOVORIN CALCIUM. [Suspect]
     Active Substance: LEUCOVORIN CALCIUM
     Indication: ADENOCARCINOMA GASTRIC
     Route: 065
     Dates: start: 20090709, end: 20091001
  4. 5-FLUOROURACIL [Suspect]
     Active Substance: FLUOROURACIL
     Route: 065
     Dates: start: 20091020, end: 20091209
  5. CISPLATIN. [Suspect]
     Active Substance: CISPLATIN
     Indication: ADENOCARCINOMA GASTRIC
     Route: 065
     Dates: start: 20080829, end: 20090611
  6. TAXOL [Suspect]
     Active Substance: PACLITAXEL
     Indication: ADENOCARCINOMA GASTRIC
     Route: 065
     Dates: start: 20090709, end: 20091001
  7. OXALIPLATIN. [Suspect]
     Active Substance: OXALIPLATIN
     Indication: ADENOCARCINOMA GASTRIC
     Route: 065
     Dates: start: 20091020, end: 20091209
  8. CAPECITABINE. [Suspect]
     Active Substance: CAPECITABINE
     Indication: ADENOCARCINOMA GASTRIC
     Route: 065
     Dates: start: 20080829, end: 20090611
  9. BEVACIZUMAB [Suspect]
     Active Substance: BEVACIZUMAB
     Indication: ADENOCARCINOMA GASTRIC
     Route: 065
     Dates: start: 20080829, end: 20090611

REACTIONS (16)
  - Gingival swelling [Recovering/Resolving]
  - Periodontitis [Recovering/Resolving]
  - Hypophagia [Recovering/Resolving]
  - Periodontal destruction [Recovering/Resolving]
  - Drug effect incomplete [Unknown]
  - Dental plaque [Recovering/Resolving]
  - Gingivitis ulcerative [Recovering/Resolving]
  - Bone loss [Recovering/Resolving]
  - Malignant neoplasm progression [Fatal]
  - Oral pain [Recovering/Resolving]
  - Oral mucosal exfoliation [Recovering/Resolving]
  - Adenocarcinoma gastric [Fatal]
  - Oral candidiasis [Recovering/Resolving]
  - Breath odour [Recovering/Resolving]
  - Inflammation [Recovering/Resolving]
  - Alveolar bone resorption [Recovering/Resolving]
